FAERS Safety Report 12115953 (Version 1)
Quarter: 2016Q1

REPORT INFORMATION
  Report Type: Spontaneous
  Country: US (occurrence: US)
  Receive Date: 20160225
  Receipt Date: 20160225
  Transmission Date: 20160526
  Serious: No
  Sender: FDA-Public Use
  Company Number: US-LANTHEUS-LMI-2015-00564

PATIENT
  Age: 42 Year
  Sex: Female
  Weight: 104 kg

DRUGS (5)
  1. DOBUTAMINE [Suspect]
     Active Substance: DOBUTAMINE\DOBUTAMINE HYDROCHLORIDE
     Indication: STRESS ECHOCARDIOGRAM
     Dosage: 10 MCG/KG/MIN
     Route: 041
     Dates: start: 20151015, end: 20151015
  2. LISPRO [Concomitant]
     Active Substance: INSULIN LISPRO
     Indication: PRODUCT USED FOR UNKNOWN INDICATION
  3. DEFINITY [Suspect]
     Active Substance: PERFLUTREN
     Indication: STRESS ECHOCARDIOGRAM
     Dosage: 1.5 ML DEFINITY DILUTED IN 8.5 ML NORMAL SALINE
     Route: 040
     Dates: start: 20151015, end: 20151015
  4. DEFINITY [Suspect]
     Active Substance: PERFLUTREN
     Dosage: 1.5 ML DEFINITY DILUTED IN 8.5 ML NORMAL SALINE
     Route: 040
     Dates: start: 20151015, end: 20151015
  5. ASA [Concomitant]
     Active Substance: ASPIRIN
     Indication: PRODUCT USED FOR UNKNOWN INDICATION

REACTIONS (2)
  - Pain in extremity [Recovered/Resolved]
  - Back pain [Recovered/Resolved]

NARRATIVE: CASE EVENT DATE: 20151015
